FAERS Safety Report 14215820 (Version 1)
Quarter: 2017Q4

REPORT INFORMATION
  Report Type: Not Available
  Country: US (occurrence: US)
  Receive Date: 20171122
  Receipt Date: 20171122
  Transmission Date: 20180321
  Serious: No
  Sender: FDA-Public Use
  Company Number: US-MIDATECHPHARMA-2017-US-002608

PATIENT
  Age: 89 Year
  Sex: Female
  Weight: 63.5 kg

DRUGS (1)
  1. ORAVIG [Suspect]
     Active Substance: MICONAZOLE
     Dosage: ONE TABLET
     Route: 048
     Dates: start: 20170308

REACTIONS (3)
  - Nausea [Not Recovered/Not Resolved]
  - Product solubility abnormal [None]
  - Application site pain [Unknown]

NARRATIVE: CASE EVENT DATE: 20170308
